FAERS Safety Report 8874216 (Version 2)
Quarter: 2012Q4

REPORT INFORMATION
  Report Type: 
  Country: FI (occurrence: FI)
  Receive Date: 20121023
  Receipt Date: 20121105
  Transmission Date: 20130627
  Serious: Yes (Other)
  Sender: FDA-Public Use
  Company Number: FI-BRISTOL-MYERS SQUIBB COMPANY-17040338

PATIENT
  Age: 43 Year
  Sex: Female

DRUGS (6)
  1. ORENCIA [Suspect]
     Indication: RHEUMATOID ARTHRITIS
     Dosage: Last dose-02Oct12
     Route: 042
     Dates: start: 20110328
  2. AZATHIOPRINE [Concomitant]
  3. NEXIUM [Concomitant]
  4. PREDNISOLONE [Concomitant]
  5. PRIMASPAN [Concomitant]
  6. KALCIPOS [Concomitant]

REACTIONS (1)
  - Essential thrombocythaemia [Not Recovered/Not Resolved]
